FAERS Safety Report 23537277 (Version 3)
Quarter: 2025Q1

REPORT INFORMATION
  Report Type: Report from Study
  Country: US (occurrence: US)
  Receive Date: 20240219
  Receipt Date: 20250205
  Transmission Date: 20250408
  Serious: Yes (Other)
  Sender: AURINIA PHARMACEUTICALS
  Company Number: US-OTSUKA PHARMACEUTICAL NETHERLANDS B.V.-AUR-004272

PATIENT
  Sex: Female

DRUGS (7)
  1. LUPKYNIS [Suspect]
     Active Substance: VOCLOSPORIN
     Indication: Lupus nephritis
     Dosage: 15.8 MILLIGRAM, BID
     Route: 048
     Dates: start: 20220429
  2. LUPKYNIS [Suspect]
     Active Substance: VOCLOSPORIN
     Dosage: 15.8 MILLIGRAM, BID
     Route: 048
  3. LUPKYNIS [Suspect]
     Active Substance: VOCLOSPORIN
     Dosage: 7.9 MILLIGRAM, BID
     Route: 048
  4. LUPKYNIS [Suspect]
     Active Substance: VOCLOSPORIN
     Dosage: 7.9 MILLIGRAM, BID
     Route: 048
  5. LUPKYNIS [Suspect]
     Active Substance: VOCLOSPORIN
     Dosage: 7.9 MILLIGRAM, BID
     Route: 048
  6. BACTRIM [Suspect]
     Active Substance: SULFAMETHOXAZOLE\TRIMETHOPRIM
     Indication: Product used for unknown indication
  7. ASPIRIN\CAFFEINE [Suspect]
     Active Substance: ASPIRIN\CAFFEINE
     Indication: Product used for unknown indication

REACTIONS (8)
  - Acute kidney injury [Recovered/Resolved]
  - Renal impairment [Unknown]
  - Pollakiuria [Unknown]
  - Nocturia [Unknown]
  - Urinary incontinence [Unknown]
  - Alopecia [Unknown]
  - Urinary tract infection [Unknown]
  - Blood creatinine increased [Unknown]
